FAERS Safety Report 9258022 (Version 1)
Quarter: 2013Q2

REPORT INFORMATION
  Report Type: Spontaneous
  Country: US (occurrence: None)
  Receive Date: 20130424
  Receipt Date: 20130424
  Transmission Date: 20140414
  Serious: No
  Sender: FDA-Public Use
  Company Number: None

PATIENT
  Age: 81 Year
  Sex: Male
  Weight: 63.5 kg

DRUGS (1)
  1. AZITHROMYCIN [Suspect]
     Indication: OROPHARYNGEAL PAIN
     Dosage: 1ST DAY 2 TABLETS, 2ND TO 5TH DAY, 1 TABLET
     Dates: start: 20130119, end: 20130121

REACTIONS (1)
  - Diarrhoea [None]
